FAERS Safety Report 10581932 (Version 1)
Quarter: 2014Q4

REPORT INFORMATION
  Report Type: Spontaneous
  Country: GB (occurrence: GB)
  Receive Date: 20141113
  Receipt Date: 20141113
  Transmission Date: 20150529
  Serious: Yes (Death, Disabling, Other)
  Sender: FDA-Public Use
  Company Number: GB-BAYER-2014-163735

PATIENT
  Age: 81 Year
  Sex: Female

DRUGS (2)
  1. ACETYLSALICYLIC ACID (} 100 MG) [Suspect]
     Active Substance: ASPIRIN
     Indication: ATRIAL FIBRILLATION
  2. ACETYLSALICYLIC ACID (} 100 MG) [Suspect]
     Active Substance: ASPIRIN
     Indication: THROMBOSIS PROPHYLAXIS

REACTIONS (7)
  - Hemiparesis [None]
  - Cerebral infarction [Not Recovered/Not Resolved]
  - Cerebral infarction [None]
  - Aphasia [None]
  - Aphagia [Not Recovered/Not Resolved]
  - Epistaxis [None]
  - Lower respiratory tract infection [Fatal]
